FAERS Safety Report 26048012 (Version 1)
Quarter: 2025Q4

REPORT INFORMATION
  Report Type: Report from Study
  Country: US (occurrence: US)
  Receive Date: 20251114
  Receipt Date: 20251114
  Transmission Date: 20260117
  Serious: Yes (Death, Life-Threatening, Other)
  Sender: ABBVIE
  Company Number: US-JNJFOC-20251151042

PATIENT

DRUGS (6)
  1. IBRUTINIB [Suspect]
     Active Substance: IBRUTINIB
     Indication: Chronic lymphocytic leukaemia
     Route: 048
  2. IBRUTINIB [Suspect]
     Active Substance: IBRUTINIB
     Indication: Chronic lymphocytic leukaemia
     Route: 048
  3. IANALUMAB [Suspect]
     Active Substance: IANALUMAB
     Indication: Chronic lymphocytic leukaemia
     Route: 065
  4. IANALUMAB [Suspect]
     Active Substance: IANALUMAB
     Indication: Chronic lymphocytic leukaemia
     Route: 065
  5. IANALUMAB [Suspect]
     Active Substance: IANALUMAB
     Indication: Chronic lymphocytic leukaemia
     Route: 065
  6. IANALUMAB [Suspect]
     Active Substance: IANALUMAB
     Indication: Chronic lymphocytic leukaemia
     Route: 065

REACTIONS (39)
  - COVID-19 [Fatal]
  - Dyspepsia [Unknown]
  - Amylase increased [Unknown]
  - Back pain [Unknown]
  - Hyperuricaemia [Unknown]
  - Stomatitis [Unknown]
  - Hypertriglyceridaemia [Unknown]
  - Blood bilirubin increased [Unknown]
  - Diarrhoea [Unknown]
  - Off label use [Unknown]
  - Blood creatinine increased [Unknown]
  - Aortic aneurysm [Unknown]
  - Rash [Unknown]
  - Headache [Unknown]
  - Leukocytosis [Unknown]
  - Platelet count decreased [Unknown]
  - Nausea [Unknown]
  - Lipase increased [Unknown]
  - Pain in extremity [Unknown]
  - Fatigue [Unknown]
  - Arthralgia [Unknown]
  - Anaemia [Unknown]
  - Hyperglycaemia [Unknown]
  - Hypermagnesaemia [Unknown]
  - Constipation [Unknown]
  - White blood cell count decreased [Unknown]
  - Aspartate aminotransferase increased [Unknown]
  - Alanine aminotransferase increased [Unknown]
  - Hypertension [Unknown]
  - Upper respiratory tract infection [Unknown]
  - Hypophosphataemia [Unknown]
  - Infusion related reaction [Unknown]
  - Lymphocyte count decreased [Unknown]
  - Non-cardiac chest pain [Unknown]
  - Drug resistance [Unknown]
  - Neutropenia [Unknown]
  - Hypokalaemia [Unknown]
  - Toxicity to various agents [Unknown]
  - Cough [Unknown]
